FAERS Safety Report 6199849-7 (Version None)
Quarter: 2009Q2

REPORT INFORMATION
  Report Type: 
  Country: None (occurrence: None)
  Receive Date: 20090518
  Receipt Date: 20090324
  Transmission Date: 20091009
  Serious: Yes (Other)
  Sender: FDA-Public Use
  Company Number: WAES 0811USA0864

PATIENT
  Age: 67 Year
  Sex: Female

DRUGS (5)
  1. JANUVIA [Suspect]
     Indication: DIABETES MELLITUS
     Dosage: 100 MG/DAILY/PO
     Route: 048
     Dates: start: 20080901, end: 20081105
  2. PREVACID [Concomitant]
  3. [THERAPY UNSPECIFIED] [Concomitant]
  4. CORTICOSTEROIDS (UNSPECIFIED) [Concomitant]
  5. VITAMINS (UNSPECIFIED) [Concomitant]

REACTIONS (10)
  - BLOOD GLUCOSE INCREASED [None]
  - COUGH [None]
  - DRUG INEFFECTIVE [None]
  - HUNGER [None]
  - OROPHARYNGEAL PAIN [None]
  - PANCREATITIS [None]
  - POLLAKIURIA [None]
  - RASH PRURITIC [None]
  - THERAPEUTIC RESPONSE UNEXPECTED [None]
  - VOMITING [None]
